FAERS Safety Report 15518108 (Version 1)
Quarter: 2018Q4

REPORT INFORMATION
  Report Type: Spontaneous
  Country: US (occurrence: US)
  Receive Date: 20181012
  Receipt Date: 20181012
  Transmission Date: 20190205
  Serious: Yes (Life-Threatening, Hospitalization, Disabling)
  Sender: FDA-Public Use
  Company Number: None

PATIENT
  Sex: Male
  Weight: 72 kg

DRUGS (1)
  1. CLONAZEPAM. [Suspect]
     Active Substance: CLONAZEPAM
     Indication: ANXIETY
     Route: 048
     Dates: end: 20181011

REACTIONS (12)
  - Suicidal ideation [None]
  - Skin disorder [None]
  - Paranoia [None]
  - Mood swings [None]
  - Product complaint [None]
  - Delusion [None]
  - Drug withdrawal syndrome [None]
  - Muscle spasms [None]
  - Psychotic disorder [None]
  - Mania [None]
  - Suicide attempt [None]
  - Antisocial behaviour [None]
